FAERS Safety Report 4315003-5 (Version None)
Quarter: 2004Q1

REPORT INFORMATION
  Report Type: 
  Country: None (occurrence: None)
  Receive Date: 20040309
  Receipt Date: 20040225
  Transmission Date: 20041129
  Serious: Yes (Other)
  Sender: FDA-Public Use
  Company Number: UK067795

PATIENT
  Age: 76 Year
  Sex: Male

DRUGS (1)
  1. NEULASTA [Suspect]
     Indication: CHEMOTHERAPY
     Dosage: SC
     Route: 058
     Dates: start: 20040221, end: 20040221

REACTIONS (1)
  - HYPERSENSITIVITY [None]
